FAERS Safety Report 5707238-1 (Version None)
Quarter: 2008Q2

REPORT INFORMATION
  Report Type: 
  Country: None (occurrence: None)
  Receive Date: 20080414
  Receipt Date: 20080414
  Transmission Date: 20081010
  Serious: Yes (Other)
  Sender: FDA-Public Use
  Company Number: None

PATIENT
  Sex: Male
  Weight: 125 kg

DRUGS (2)
  1. CEFTRIAXONE [Suspect]
     Dosage: 1 GM
  2. VANCOMYCIN [Suspect]

REACTIONS (2)
  - PRURITUS [None]
  - RASH [None]
